FAERS Safety Report 21096679 (Version 1)
Quarter: 2022Q3

REPORT INFORMATION
  Report Type: Spontaneous
  Country: US (occurrence: US)
  Receive Date: 20220718
  Receipt Date: 20220718
  Transmission Date: 20221027
  Serious: Yes (Other)
  Sender: FDA-Public Use
  Company Number: US-LANNETT COMPANY, INC.-US-2022LAN000085

PATIENT
  Age: 79 Year
  Sex: Female

DRUGS (2)
  1. PROPRANOLOL HYDROCHLORIDE [Suspect]
     Active Substance: PROPRANOLOL HYDROCHLORIDE
     Indication: Heart rate irregular
     Dosage: UNK
     Route: 048
     Dates: start: 20220502
  2. PROPRANOLOL HYDROCHLORIDE [Suspect]
     Active Substance: PROPRANOLOL HYDROCHLORIDE
     Indication: Blood pressure measurement

REACTIONS (10)
  - Arrhythmia [Unknown]
  - Heart rate irregular [Unknown]
  - Tinnitus [Unknown]
  - Hyperhidrosis [Unknown]
  - Somnolence [Unknown]
  - Asthenia [Unknown]
  - Abdominal pain lower [Unknown]
  - Fatigue [None]
  - Blood pressure increased [Unknown]
  - Drug ineffective [Unknown]

NARRATIVE: CASE EVENT DATE: 20220501
